FAERS Safety Report 8896250 (Version 1)
Quarter: 2012Q4

REPORT INFORMATION
  Report Type: Spontaneous
  Country: US (occurrence: None)
  Receive Date: 20121106
  Receipt Date: 20121106
  Transmission Date: 20130627
  Serious: Yes (Other)
  Sender: FDA-Public Use
  Company Number: None

PATIENT
  Age: 63 Year
  Sex: Female
  Weight: 68.04 kg

DRUGS (1)
  1. PIOGLITAZONE [Suspect]
     Indication: DIABETES
     Dosage: 30mg once daily po
     Route: 048
     Dates: start: 20120918, end: 20121015

REACTIONS (5)
  - Nausea [None]
  - Middle insomnia [None]
  - Retching [None]
  - Vomiting [None]
  - Product substitution issue [None]
